FAERS Safety Report 7000036-0 (Version None)
Quarter: 2010Q3

REPORT INFORMATION
  Report Type: 
  Country: None (occurrence: None)
  Receive Date: 20100920
  Receipt Date: 20100201
  Transmission Date: 20110219
  Serious: No
  Sender: FDA-Public Use
  Company Number: US-ASTRAZENECA-2010SE04357

PATIENT
  Age: 55 Year
  Sex: Male

DRUGS (3)
  1. SEROQUEL [Suspect]
     Indication: AFFECTIVE DISORDER
     Dosage: 300 MG IN THE AM, 300 MG AT NOON AND 600 MG IN PM
     Route: 048
     Dates: start: 20080701
  2. LEXAPRO [Concomitant]
  3. LITHIUM [Concomitant]

REACTIONS (1)
  - TOOTH LOSS [None]
